FAERS Safety Report 12446375 (Version 2)
Quarter: 2016Q3

REPORT INFORMATION
  Report Type: Report from Study
  Country: IT (occurrence: IT)
  Receive Date: 20160608
  Receipt Date: 20160729
  Transmission Date: 20161109
  Serious: Yes (Hospitalization)
  Sender: FDA-Public Use
  Company Number: IT-ROCHE-1769270

PATIENT
  Age: 72 Year
  Sex: Male

DRUGS (14)
  1. METHYLPREDNISOLONE. [Suspect]
     Active Substance: METHYLPREDNISOLONE
     Indication: EXTRANODAL MARGINAL ZONE B-CELL LYMPHOMA (MALT TYPE)
     Dosage: 1 CYCLE
     Route: 048
     Dates: start: 20150420, end: 20150420
  2. GAVISCON (ITALY) [Concomitant]
     Route: 048
     Dates: start: 20150404
  3. LEVOFLOXACIN. [Concomitant]
     Active Substance: LEVOFLOXACIN
     Indication: PROPHYLAXIS
     Route: 048
     Dates: start: 20151011, end: 20151013
  4. RITUXIMAB [Suspect]
     Active Substance: RITUXIMAB
     Indication: EXTRANODAL MARGINAL ZONE B-CELL LYMPHOMA (MALT TYPE)
     Dosage: 375MG/M2 ON DAY 1 WEEK 1 AS PER PROTOCOL?4 CYCLE (PHASE I PROTOCOL IELSG38)
     Route: 042
     Dates: start: 20150420, end: 20150511
  5. NISTATIN [Concomitant]
     Active Substance: NYSTATIN
     Indication: PROPHYLAXIS
     Dosage: 1X3
     Route: 048
     Dates: start: 20150417
  6. ONDANSETRON [Concomitant]
     Active Substance: ONDANSETRON
     Indication: NAUSEA
     Route: 048
     Dates: start: 20150417
  7. ALLOPURINOL. [Concomitant]
     Active Substance: ALLOPURINOL
     Indication: PROPHYLAXIS
     Route: 048
     Dates: start: 20150404
  8. PARACETAMOL [Concomitant]
     Active Substance: ACETAMINOPHEN
     Route: 048
     Dates: start: 20150729
  9. PANTOPRAZOLE [Concomitant]
     Active Substance: PANTOPRAZOLE SODIUM
     Indication: PROPHYLAXIS
     Route: 048
     Dates: start: 20150404
  10. SERTRALINE [Concomitant]
     Active Substance: SERTRALINE HYDROCHLORIDE
     Indication: DEPRESSION
     Route: 048
     Dates: start: 20150827
  11. RITUXIMAB [Suspect]
     Active Substance: RITUXIMAB
     Indication: EXTRANODAL MARGINAL ZONE B-CELL LYMPHOMA (MALT TYPE)
     Dosage: LAST DOSE PRIOR TO THE EVENT : 14/SEP/2015
     Route: 058
     Dates: start: 20150420
  12. VALACICLOVIR [Concomitant]
     Active Substance: VALACYCLOVIR HYDROCHLORIDE
     Route: 048
     Dates: start: 20150710
  13. PARACETAMOL [Concomitant]
     Active Substance: ACETAMINOPHEN
     Route: 048
     Dates: start: 20151011, end: 20151012
  14. CHLORAMBUCIL [Suspect]
     Active Substance: CHLORAMBUCIL
     Indication: EXTRANODAL MARGINAL ZONE B-CELL LYMPHOMA (MALT TYPE)
     Dosage: LAST DOSE PRIOR TO SAE: 27/SEP/2015
     Route: 048
     Dates: start: 20150420

REACTIONS (1)
  - Encephalopathy [Recovered/Resolved with Sequelae]

NARRATIVE: CASE EVENT DATE: 20160108
